FAERS Safety Report 24730842 (Version 1)
Quarter: 2024Q4

REPORT INFORMATION
  Report Type: Spontaneous
  Country: CN (occurrence: CN)
  Receive Date: 20241213
  Receipt Date: 20241213
  Transmission Date: 20250115
  Serious: Yes (Other)
  Sender: AMGEN
  Company Number: CN-AMGEN-CHNSP2024241999

PATIENT

DRUGS (4)
  1. BLINATUMOMAB [Suspect]
     Active Substance: BLINATUMOMAB
     Indication: B-cell type acute leukaemia
     Dosage: UNK
     Route: 065
  2. DEXAMETHASONE [Concomitant]
     Active Substance: DEXAMETHASONE
     Route: 040
  3. LORATADINE [Concomitant]
     Active Substance: LORATADINE
     Route: 048
  4. IBUPROFEN [Concomitant]
     Active Substance: IBUPROFEN

REACTIONS (8)
  - Minimal residual disease [Unknown]
  - Cytokine release syndrome [Unknown]
  - Neurotoxicity [Unknown]
  - Myelosuppression [Unknown]
  - Infection [Unknown]
  - Drug ineffective [Unknown]
  - Gastrointestinal disorder [Unknown]
  - Hepatic enzyme increased [Unknown]
